FAERS Safety Report 12362874 (Version 1)
Quarter: 2016Q2

REPORT INFORMATION
  Report Type: Spontaneous
  Country: ES (occurrence: ES)
  Receive Date: 20160512
  Receipt Date: 20160512
  Transmission Date: 20160815
  Serious: Yes (Hospitalization)
  Sender: FDA-Public Use
  Company Number: ES-009507513-1605ESP004977

PATIENT
  Age: 68 Year
  Sex: Male

DRUGS (13)
  1. FENDIVIA [Concomitant]
     Indication: ANALGESIC THERAPY
     Dosage: STRENGTH: 100 MCG/HOUR, UNKNOWN
     Route: 062
     Dates: start: 201603
  2. GOBEMICINA [Concomitant]
     Indication: STREPTOCOCCAL ENDOCARDITIS
     Dosage: 3 G, 4 TIMES A DAY
     Route: 042
     Dates: start: 201603, end: 20160330
  3. KONAKION [Concomitant]
     Active Substance: PHYTONADIONE
     Indication: PRODUCT USED FOR UNKNOWN INDICATION
     Dosage: FORMULATION: ORAL SOLUTION/INJECTABLE SOLUTION
     Route: 042
     Dates: start: 201603, end: 20160329
  4. TRANGOREX [Concomitant]
     Active Substance: AMIODARONE HYDROCHLORIDE
     Indication: ATRIAL FIBRILLATION
     Dosage: UNK, UNKNOWN
     Route: 048
     Dates: start: 2016, end: 20160405
  5. ACYCLOVIR. [Concomitant]
     Active Substance: ACYCLOVIR
     Indication: ENCEPHALOPATHY
     Dosage: UNK, UNKNOWN
     Route: 042
     Dates: start: 201603, end: 20160330
  6. CLEXANE (ENOXAPARIN SODIUM) [Concomitant]
     Active Substance: ENOXAPARIN SODIUM
     Indication: PROPHYLAXIS
     Dosage: STRENGTH: 20 MG, 2000 IU, UNKNOWN
     Route: 058
     Dates: start: 201603, end: 20160404
  7. MEROPENEM. [Concomitant]
     Active Substance: MEROPENEM
     Indication: SEPSIS
     Dosage: UNK, UNKNOWN
     Route: 042
     Dates: start: 201603, end: 201603
  8. ACTRAPID (INSULIN, NEUTRAL) [Concomitant]
     Indication: DIABETES MELLITUS
     Dosage: STRENGTH: 100 IU/ML, UNKNOWN
     Route: 058
     Dates: start: 201603, end: 20160405
  9. GENTAMICIN SULFATE. [Concomitant]
     Active Substance: GENTAMICIN SULFATE
     Indication: STREPTOCOCCAL ENDOCARDITIS
     Dosage: 200 MG, ONCE PER DAY
     Route: 042
     Dates: start: 201603, end: 20160330
  10. CLOXACILLIN [Concomitant]
     Active Substance: CLOXACILLIN
     Indication: STREPTOCOCCAL ENDOCARDITIS
     Dosage: 3 G, 4 TIMES A DAY
     Route: 042
     Dates: start: 201603, end: 20160330
  11. DEXDOR [Concomitant]
     Active Substance: DEXMEDETOMIDINE HYDROCHLORIDE
     Indication: AGITATION
     Dosage: UNK, UNKNOWN
     Route: 042
     Dates: start: 201603, end: 20160328
  12. NOLOTIL (DIPYRONE MAGNESIUM) [Concomitant]
     Indication: ANALGESIC THERAPY
     Dosage: UNK, UNKNOWN
     Route: 048
     Dates: start: 2016
  13. CUBICIN [Suspect]
     Active Substance: DAPTOMYCIN
     Indication: SEPSIS
     Dosage: FORMULATION: POWDER FOR CONCENTRATE FOR SOLUTION FOR INFUSION, 1 VIAL, UNKNOWN
     Route: 042
     Dates: start: 201603, end: 20160404

REACTIONS (1)
  - Pancytopenia [Recovered/Resolved]

NARRATIVE: CASE EVENT DATE: 20160327
